FAERS Safety Report 7645967-3 (Version None)
Quarter: 2011Q3

REPORT INFORMATION
  Report Type: 
  Country: None (occurrence: None)
  Receive Date: 20110729
  Receipt Date: 20101105
  Transmission Date: 20111222
  Serious: Yes (Hospitalization, Disabling, Other)
  Sender: FDA-Public Use
  Company Number: NL-AMGEN-NLDSP2010000305

PATIENT
  Age: 77 Year
  Sex: Male

DRUGS (7)
  1. VALSARTAN [Concomitant]
  2. PANITUMUMAB [Suspect]
     Indication: COLON CANCER METASTATIC
     Dosage: 470 MG, UNK
     Dates: start: 20091125, end: 20110320
  3. ALLOPURINOL [Concomitant]
     Dosage: 300 MG, QD
     Dates: start: 20070101
  4. METOPROLOL TARTRATE [Concomitant]
     Dosage: 50 MG, QD
     Dates: start: 20080701
  5. PANTOZOL                           /01263202/ [Concomitant]
     Dosage: 40 MG, QD
     Dates: start: 20070101
  6. TAMSULOSIN HCL [Concomitant]
     Dosage: 0.4 MG, QD
     Dates: start: 20070101
  7. DIOVAN [Concomitant]
     Dosage: 160 MG, QD
     Dates: start: 20090101, end: 20100614

REACTIONS (7)
  - CHOREA [None]
  - RASH [None]
  - ATAXIA [None]
  - COUGH [None]
  - NAIL DISORDER [None]
  - PARANEOPLASTIC SYNDROME [None]
  - HYPOMAGNESAEMIA [None]
